FAERS Safety Report 24014966 (Version 2)
Quarter: 2024Q3

REPORT INFORMATION
  Report Type: Spontaneous
  Country: US (occurrence: US)
  Receive Date: 20240626
  Receipt Date: 20240701
  Transmission Date: 20241016
  Serious: Yes (Life-Threatening, Hospitalization)
  Sender: PFIZER
  Company Number: US-MLMSERVICE-20240613-PI100407-00331-1

PATIENT
  Age: 43 Year
  Sex: Female

DRUGS (1)
  1. VERAPAMIL HCL [Suspect]
     Active Substance: VERAPAMIL HYDROCHLORIDE
     Dosage: UNK

REACTIONS (6)
  - Overdose [Recovering/Resolving]
  - Shock [Recovering/Resolving]
  - Left ventricular dysfunction [Recovering/Resolving]
  - Hypoxia [Recovering/Resolving]
  - Pulmonary arterial wedge pressure increased [Recovering/Resolving]
  - Pulse absent [Recovered/Resolved]
